FAERS Safety Report 17902579 (Version 2)
Quarter: 2020Q2

REPORT INFORMATION
  Report Type: Spontaneous
  Country: BR (occurrence: BR)
  Receive Date: 20200616
  Receipt Date: 20200619
  Transmission Date: 20200714
  Serious: Yes (Other)
  Sender: FDA-Public Use
  Company Number: BR-ELI_LILLY_AND_COMPANY-BR202006002701

PATIENT
  Sex: Female

DRUGS (2)
  1. BASAGLAR [Suspect]
     Active Substance: INSULIN GLARGINE
     Dosage: 25 INTERNATIONAL UNIT, TID
     Route: 058
  2. BASAGLAR [Suspect]
     Active Substance: INSULIN GLARGINE
     Indication: DIABETES MELLITUS
     Dosage: 25 INTERNATIONAL UNIT, TID
     Route: 058
     Dates: start: 2016

REACTIONS (5)
  - Product storage error [Unknown]
  - Breast cancer metastatic [Unknown]
  - Nervousness [Unknown]
  - Blindness [Unknown]
  - Blood glucose abnormal [Unknown]
